FAERS Safety Report 9630367 (Version 4)
Quarter: 2014Q2

REPORT INFORMATION
  Report Type: Report from Study
  Country: US (occurrence: US)
  Receive Date: 20131018
  Receipt Date: 20140603
  Transmission Date: 20141212
  Serious: Yes (Death, Hospitalization, Other)
  Sender: FDA-Public Use
  Company Number: US-BIOGENIDEC-2013BI098992

PATIENT
  Sex: Female

DRUGS (12)
  1. TYSABRI [Suspect]
     Indication: MULTIPLE SCLEROSIS
     Route: 042
     Dates: start: 20120412, end: 20130829
  2. AVONEX [Concomitant]
     Indication: MULTIPLE SCLEROSIS
     Route: 030
     Dates: start: 20090709
  3. ABILIFY [Concomitant]
  4. ALPRAZOLAM [Concomitant]
  5. METHADONE [Concomitant]
  6. BUSPAR [Concomitant]
  7. HYDROCODONE [Concomitant]
  8. GABAPENTIN [Concomitant]
  9. TOPAMAX [Concomitant]
  10. SEROQUEL [Concomitant]
  11. TRAZODONE [Concomitant]
  12. TIZANIDINE [Concomitant]

REACTIONS (4)
  - Hypoxic-ischaemic encephalopathy [Fatal]
  - Overdose [Unknown]
  - Acute respiratory failure [Unknown]
  - Brain death [Unknown]
